FAERS Safety Report 5425013-2 (Version None)
Quarter: 2007Q3

REPORT INFORMATION
  Report Type: 
  Country: None (occurrence: None)
  Receive Date: 20070822
  Receipt Date: 20070813
  Transmission Date: 20080115
  Serious: Yes (Disabling, Other)
  Sender: FDA-Public Use
  Company Number: 07H-163-0313050-00

PATIENT
  Age: 25 Year
  Sex: Male

DRUGS (1)
  1. A-METHOPRED INJECTION (METHYLPREDNISOLONE SODIUM SUCCINATE) (METHYLPRE [Suspect]
     Indication: DEAFNESS NEUROSENSORY
     Dosage: INTRATYMPANIC INJECTION; INTRATYMPANIC INJECTION

REACTIONS (2)
  - POST PROCEDURAL COMPLICATION [None]
  - TYMPANIC MEMBRANE PERFORATION [None]
